FAERS Safety Report 5498622-2 (Version None)
Quarter: 2007Q4

REPORT INFORMATION
  Report Type: 
  Country: None (occurrence: None)
  Receive Date: 20071024
  Receipt Date: 20071024
  Transmission Date: 20080405
  Serious: Yes (Disabling)
  Sender: FDA-Public Use
  Company Number: None

PATIENT
  Age: 68 Year
  Sex: Female
  Weight: 99.7913 kg

DRUGS (1)
  1. VERAPAMIL [Suspect]
     Indication: HYPERTENSION
     Dosage: 1 A DAY
     Dates: start: 19900514, end: 20070820

REACTIONS (4)
  - DYSPNOEA [None]
  - DYSSTASIA [None]
  - PAIN [None]
  - PAIN IN EXTREMITY [None]
